FAERS Safety Report 7040082-4 (Version None)
Quarter: 2010Q4

REPORT INFORMATION
  Report Type: 
  Country: None (occurrence: None)
  Receive Date: 20101012
  Receipt Date: 20100929
  Transmission Date: 20110411
  Serious: Yes (Other)
  Sender: FDA-Public Use
  Company Number: PHHY2010ZA64727

PATIENT
  Sex: Female

DRUGS (1)
  1. TEGRETOL-XR [Suspect]
     Indication: PAIN

REACTIONS (3)
  - GANGRENE [None]
  - OEDEMA PERIPHERAL [None]
  - SKIN DISCOLOURATION [None]
